FAERS Safety Report 16684970 (Version 1)
Quarter: 2019Q3

REPORT INFORMATION
  Report Type: Spontaneous
  Country: FR (occurrence: FR)
  Receive Date: 20190808
  Receipt Date: 20190808
  Transmission Date: 20191004
  Serious: Yes (Death, Hospitalization)
  Sender: FDA-Public Use
  Company Number: FR-MYLANLABS-2019M1074334

PATIENT
  Age: 54 Year
  Sex: Male
  Weight: 70 kg

DRUGS (1)
  1. CLOZAPINE MYLAN 100 MG, COMPRIM? S?CABLE [Suspect]
     Active Substance: CLOZAPINE
     Indication: SCHIZOPHRENIA
     Dosage: 800 MILLIGRAM
     Route: 048
     Dates: start: 201401, end: 20190208

REACTIONS (3)
  - Constipation [Fatal]
  - Faecal vomiting [Fatal]
  - Faecaloma [Fatal]

NARRATIVE: CASE EVENT DATE: 20190208
